FAERS Safety Report 5679289-7 (Version None)
Quarter: 2008Q1

REPORT INFORMATION
  Report Type: 
  Country: None (occurrence: None)
  Receive Date: 20080325
  Receipt Date: 20080318
  Transmission Date: 20080703
  Serious: Yes (Death)
  Sender: FDA-Public Use
  Company Number: US-JNJFOC-20071201484

PATIENT
  Age: 92 Year
  Sex: Female

DRUGS (3)
  1. HALDOL [Suspect]
     Indication: ANXIETY
     Route: 042
  2. HALDOL [Suspect]
     Indication: AGITATION
     Route: 042
  3. INSULIN [Concomitant]
     Indication: DIABETES MELLITUS

REACTIONS (3)
  - CARDIAC ARREST [None]
  - CARDIAC DISORDER [None]
  - MYOCARDIAL INFARCTION [None]
